FAERS Safety Report 4633880-5 (Version None)
Quarter: 2005Q2

REPORT INFORMATION
  Report Type: 
  Country: None (occurrence: None)
  Receive Date: 20050408
  Receipt Date: 20050923
  Transmission Date: 20051028
  Serious: Yes (Hospitalization)
  Sender: FDA-Public Use
  Company Number: D01200403799

PATIENT
  Age: 56 Year
  Sex: Male
  Weight: 113 kg

DRUGS (2)
  1. CISPLATIN [Suspect]
     Indication: SMALL CELL LUNG CANCER EXTENSIVE STAGE
     Dosage: 80 MG/M2 CONT - INTRAVENOUS NOS
     Route: 042
     Dates: start: 20040915, end: 20040915
  2. ETOPOSIDE [Suspect]
     Indication: SMALL CELL LUNG CANCER EXTENSIVE STAGE
     Dosage: 120 MG/M2 GIVEN ON DAYS 1, 2 AND 3, IN A 30 MINUTE INFUSION - IV NOS
     Route: 042
     Dates: start: 20040915, end: 20040917

REACTIONS (8)
  - COMA HEPATIC [None]
  - DEPRESSED LEVEL OF CONSCIOUSNESS [None]
  - DISEASE PROGRESSION [None]
  - FEBRILE NEUTROPENIA [None]
  - GASTROINTESTINAL ULCER PERFORATION [None]
  - METASTASES TO LIVER [None]
  - PNEUMOPERITONEUM [None]
  - THROMBOCYTOPENIA [None]
